FAERS Safety Report 12428900 (Version 1)
Quarter: 2016Q2

REPORT INFORMATION
  Report Type: Spontaneous
  Country: ES (occurrence: ES)
  Receive Date: 20160602
  Receipt Date: 20160602
  Transmission Date: 20160815
  Serious: Yes (Life-Threatening, Hospitalization)
  Sender: FDA-Public Use
  Company Number: ES-JNJFOC-20160600275

PATIENT
  Age: 41 Year
  Sex: Female

DRUGS (2)
  1. INVOKANA [Suspect]
     Active Substance: CANAGLIFLOZIN
     Indication: TYPE 2 DIABETES MELLITUS
     Dosage: 30 TABLETS
     Route: 048
     Dates: start: 20160210, end: 20160316
  2. MAGNESIA CINFA [Concomitant]
     Indication: CONSTIPATION
     Dosage: 14 SACHET
     Route: 048

REACTIONS (2)
  - Hypokalaemia [Recovering/Resolving]
  - Acute kidney injury [Recovering/Resolving]

NARRATIVE: CASE EVENT DATE: 20160316
